FAERS Safety Report 7232931 (Version 2)
Quarter: 2021Q2

REPORT INFORMATION
  Report Type: Spontaneous
  Country: JP (occurrence: JP)
  Receive Date: 20091229
  Receipt Date: 20210511
  Transmission Date: 20210717
  Serious: Yes (Other)
  Sender: FDA-Public Use
  Company Number: JP-PFIZER INC-2009314471

PATIENT
  Age: 76 Year
  Sex: Male
  Weight: 62 kg

DRUGS (10)
  1. ALLOPURINOL. [Concomitant]
     Active Substance: ALLOPURINOL
     Route: 048
  2. AMLODIPINE [Concomitant]
     Active Substance: AMLODIPINE BESYLATE
     Route: 048
  3. REBAMIPIDE [Concomitant]
     Active Substance: REBAMIPIDE
     Route: 048
  4. PROPOFOL. [Concomitant]
     Active Substance: PROPOFOL
     Indication: ANAESTHESIA
  5. ROCURONIUM [Concomitant]
     Active Substance: ROCURONIUM BROMIDE
  6. SEVOFLURANE. [Concomitant]
     Active Substance: SEVOFLURANE
     Indication: ANAESTHESIA
  7. ATROPINE SULFATE. [Concomitant]
     Active Substance: ATROPINE SULFATE
  8. OLMESARTAN [Concomitant]
     Active Substance: OLMESARTAN
     Route: 048
  9. CEFOPERAZIN [Suspect]
     Active Substance: CEFOPERAZONE SODIUM
     Dosage: UNK
  10. REMIFENTANIL [Concomitant]
     Active Substance: REMIFENTANIL

REACTIONS (5)
  - Anaphylactic shock [Unknown]
  - Acute coronary syndrome [Unknown]
  - Ventricular fibrillation [Unknown]
  - Kounis syndrome [Unknown]
  - Acute myocardial infarction [Unknown]
